FAERS Safety Report 21047500 (Version 1)
Quarter: 2022Q3

REPORT INFORMATION
  Report Type: Spontaneous
  Country: GB (occurrence: GB)
  Receive Date: 20220706
  Receipt Date: 20220706
  Transmission Date: 20221027
  Serious: Yes (Other)
  Sender: FDA-Public Use
  Company Number: None

PATIENT
  Age: 61 Year
  Sex: Female
  Weight: 95 kg

DRUGS (14)
  1. VENLAFAXINE [Suspect]
     Active Substance: VENLAFAXINE HYDROCHLORIDE
     Indication: Product used for unknown indication
     Dosage: 37.5 MILLIGRAM
     Route: 065
     Dates: start: 20220620
  2. ELLESTE-SOLO [Concomitant]
     Dosage: 1 DOSAGE FORM, QD ONE TO BE TAKEN DAILY
     Route: 065
     Dates: start: 20220624
  3. FLUCONAZOLE [Concomitant]
     Active Substance: FLUCONAZOLE
     Indication: Candida infection
     Dosage: 1 DOSAGE FORM, QD, TAKE ONE CAPSULE TO TREAT THRUSH ON DAY 1 AND DAY 4.
     Route: 065
     Dates: start: 20220622
  4. HYALURONATE SODIUM [Concomitant]
     Active Substance: HYALURONATE SODIUM
     Dosage: USE AS PER EYE HOSPITAL
     Route: 065
     Dates: start: 20200617
  5. LACTULOSE [Concomitant]
     Active Substance: LACTULOSE
     Indication: Constipation
     Dosage: 15 MILLILITER, PRN 15ML TWICE DAILY AS NEEDED FOR CONSTIPATION
     Route: 065
     Dates: start: 20220314
  6. LEVOTHYROXINE [Concomitant]
     Active Substance: LEVOTHYROXINE
     Dosage: 1 DOSAGE FORM, QD TAKE ONE EACH MORNING
     Route: 065
     Dates: start: 20200617
  7. PEPPERMINT OIL [Concomitant]
     Active Substance: PEPPERMINT OIL
     Dosage: 1 DOSAGE FORM, TID TAKE ONE 3 TIMES/DAY
     Route: 065
     Dates: start: 20200617
  8. PREGABALIN [Concomitant]
     Active Substance: PREGABALIN
     Dosage: 3 DOSAGE FORM, QD ONE IN THE MORNING AND TWO AT NIGHT EACH DAY
     Route: 065
     Dates: start: 20200617
  9. ALBUTEROL [Concomitant]
     Active Substance: ALBUTEROL
     Dosage: 2 DOSAGE FORM, PRN INHALE 2 DOSES AS NEEDED
     Dates: start: 20200617
  10. SOOLANTRA [Concomitant]
     Active Substance: IVERMECTIN
     Dosage: 1 DOSAGE FORM, QD APPLY ONCE A DAY AS DIRECTED. FOR UPT OT 4 MONTHS
     Route: 065
     Dates: start: 20210910
  11. SUMATRIPTAN [Concomitant]
     Active Substance: SUMATRIPTAN
     Dosage: 1 DOSAGE FORM, PRN ONE AS NEEDED - MAX 6 DAILY
     Route: 065
     Dates: start: 20200617
  12. TRAMADOL [Concomitant]
     Active Substance: TRAMADOL
     Dosage: UNK, ONE OR TWO TO BE TAKEN TO BE TAKEN FOUR TIMES DAY
     Route: 065
     Dates: start: 20201230
  13. Vagirux [Concomitant]
     Dosage: UNK, INSERT ONE EAC NIGHT FOR 2 WEEKS THEN TWICE WEEKLY
     Route: 065
     Dates: start: 20220419, end: 20220618
  14. ZOPICLONE [Concomitant]
     Active Substance: ZOPICLONE
     Dosage: 1 DOSAGE FORM, PRN TAKE ONE AT NIGHT WHEN REQUIRED FOR SLEEP
     Route: 065
     Dates: start: 20220519, end: 20220616

REACTIONS (2)
  - Suicidal ideation [Recovered/Resolved]
  - Withdrawal syndrome [Unknown]

NARRATIVE: CASE EVENT DATE: 20220624
